FAERS Safety Report 6366491-4 (Version None)
Quarter: 2009Q3

REPORT INFORMATION
  Report Type: 
  Country: None (occurrence: None)
  Receive Date: 20090921
  Receipt Date: 20090909
  Transmission Date: 20100115
  Serious: Yes (Life-Threatening, Hospitalization)
  Sender: FDA-Public Use
  Company Number: BR-ROCHE-656033

PATIENT
  Age: 27 Year
  Sex: Male
  Weight: 107 kg

DRUGS (1)
  1. TAMIFLU [Suspect]
     Dosage: STOP DATE: 2009
     Route: 065
     Dates: start: 20090626

REACTIONS (10)
  - COMA [None]
  - INFECTION [None]
  - MUSCLE DISORDER [None]
  - OXYGEN SATURATION DECREASED [None]
  - PNEUMONIA [None]
  - RENAL FAILURE [None]
  - RESPIRATORY FAILURE [None]
  - SEPTIC SHOCK [None]
  - SYSTEMIC INFLAMMATORY RESPONSE SYNDROME [None]
  - WEIGHT DECREASED [None]
